FAERS Safety Report 6572090-1 (Version None)
Quarter: 2010Q1

REPORT INFORMATION
  Report Type: 
  Country: None (occurrence: None)
  Receive Date: 20100205
  Receipt Date: 20100122
  Transmission Date: 20100710
  Serious: Yes (Hospitalization, Other)
  Sender: FDA-Public Use
  Company Number: PHHY2010BR03990

PATIENT
  Age: 33 Year
  Sex: Male
  Weight: 79 kg

DRUGS (4)
  1. CATAFLAM [Suspect]
     Route: 048
  2. CATAFLAM [Suspect]
     Dosage: 3 OR 4 TIMES DAILY
  3. PREGABALIN [Concomitant]
     Dosage: 1 TABLET
  4. PREGABALIN [Concomitant]
     Dosage: 2 TABLET

REACTIONS (3)
  - LIGAMENT OPERATION [None]
  - PAIN [None]
  - TENDONITIS [None]
